FAERS Safety Report 11500731 (Version 1)
Quarter: 2015Q3

REPORT INFORMATION
  Report Type: Report from Study
  Country: US (occurrence: US)
  Receive Date: 20150914
  Receipt Date: 20150914
  Transmission Date: 20151125
  Serious: Yes (Other)
  Sender: FDA-Public Use
  Company Number: US-AEGERION-AEGR000426

PATIENT

DRUGS (6)
  1. JUXTAPID [Suspect]
     Active Substance: LOMITAPIDE MESYLATE
     Indication: TYPE IIA HYPERLIPIDAEMIA
     Dosage: 5 MG, QD
     Route: 048
     Dates: start: 201301, end: 201402
  2. JUXTAPID [Suspect]
     Active Substance: LOMITAPIDE MESYLATE
     Dosage: UNK
  3. JUXTAPID [Suspect]
     Active Substance: LOMITAPIDE MESYLATE
     Dosage: 5 MG, UNK
     Route: 048
     Dates: start: 20140307, end: 20141026
  4. JUXTAPID [Suspect]
     Active Substance: LOMITAPIDE MESYLATE
     Dosage: 10 MG, QD
     Route: 048
     Dates: start: 20141027
  5. CRESTOR [Concomitant]
     Active Substance: ROSUVASTATIN CALCIUM
     Indication: LIPIDS INCREASED
     Dosage: 20 MG, QD
     Route: 048
  6. ZETIA [Concomitant]
     Active Substance: EZETIMIBE
     Indication: LIPIDS INCREASED
     Dosage: 10 MG, QD
     Route: 048

REACTIONS (7)
  - Abdominal pain upper [Recovered/Resolved]
  - Intestinal obstruction [Unknown]
  - Gastroenteritis viral [Unknown]
  - Influenza [Recovered/Resolved]
  - Gastrointestinal carcinoma [Recovered/Resolved]
  - Muscle spasms [Unknown]
  - Discomfort [Unknown]

NARRATIVE: CASE EVENT DATE: 201301
